FAERS Safety Report 9878078 (Version 5)
Quarter: 2015Q1

REPORT INFORMATION
  Report Type: Spontaneous
  Country: US (occurrence: None)
  Receive Date: 20140204
  Receipt Date: 20150109
  Transmission Date: 20150721
  Serious: Yes (Hospitalization, Other)
  Sender: FDA-Public Use
  Company Number: 2013-US-004844

PATIENT
  Age: 47 Year
  Sex: Female

DRUGS (6)
  1. LUVOX CR [Suspect]
     Active Substance: FLUVOXAMINE MALEATE
     Indication: PRODUCT USED FOR UNKNOWN INDICATION
  2. XYREM [Suspect]
     Active Substance: SODIUM OXYBATE
     Indication: NARCOLEPSY
     Route: 048
     Dates: start: 200708, end: 2007
  3. NUVIGIL [Suspect]
     Active Substance: ARMODAFINIL
     Indication: PRODUCT USED FOR UNKNOWN INDICATION
  4. VYVANSE [Suspect]
     Active Substance: LISDEXAMFETAMINE DIMESYLATE
     Indication: PRODUCT USED FOR UNKNOWN INDICATION
  5. KLONOPIN [Concomitant]
     Active Substance: CLONAZEPAM
  6. ECOTRIN [Concomitant]
     Active Substance: ASPIRIN

REACTIONS (19)
  - Road traffic accident [None]
  - Paraesthesia [None]
  - Tibia fracture [None]
  - Tremor [None]
  - Psychotic disorder [None]
  - Hysterectomy [None]
  - Fear [None]
  - Fall [None]
  - Laceration [None]
  - Dyspnoea [None]
  - Paranoia [None]
  - Loss of consciousness [None]
  - Hypoaesthesia [None]
  - Joint injury [None]
  - Restless legs syndrome [None]
  - Cognitive disorder [None]
  - Pain [None]
  - Amnesia [None]
  - Anxiety [None]

NARRATIVE: CASE EVENT DATE: 2011
